FAERS Safety Report 17816568 (Version 1)
Quarter: 2020Q2

REPORT INFORMATION
  Report Type: Spontaneous
  Country: US (occurrence: US)
  Receive Date: 20200522
  Receipt Date: 20200522
  Transmission Date: 20200714
  Serious: No
  Sender: FDA-Public Use
  Company Number: US-PFIZER INC-2020203099

PATIENT
  Age: 54 Year
  Sex: Female

DRUGS (2)
  1. LOSARTAN. [Suspect]
     Active Substance: LOSARTAN
     Dosage: UNK
  2. ENALAPRILAT. [Suspect]
     Active Substance: ENALAPRILAT
     Dosage: UNK

REACTIONS (1)
  - Drug hypersensitivity [Unknown]
